FAERS Safety Report 13924877 (Version 2)
Quarter: 2017Q4

REPORT INFORMATION
  Report Type: Spontaneous
  Country: US (occurrence: US)
  Receive Date: 20170831
  Receipt Date: 20171116
  Transmission Date: 20180320
  Serious: No
  Sender: FDA-Public Use
  Company Number: US-MYLANLABS-2017M1045292

PATIENT
  Age: 34 Year
  Sex: Female
  Weight: 100 kg

DRUGS (1)
  1. DROSPIRENONE AND ETHINYL ESTRADIOL TABLETS, USP [Suspect]
     Active Substance: DROSPIRENONE\ETHINYL ESTRADIOL
     Indication: ORAL CONTRACEPTION
     Dosage: UNK UNK, QD
     Route: 048
     Dates: start: 20170409, end: 20170610

REACTIONS (2)
  - Product physical issue [Recovered/Resolved]
  - Metrorrhagia [Recovered/Resolved]

NARRATIVE: CASE EVENT DATE: 201704
